FAERS Safety Report 9397022 (Version 4)
Quarter: 2013Q3

REPORT INFORMATION
  Report Type: Report from Study
  Country: IE (occurrence: IE)
  Receive Date: 20130712
  Receipt Date: 20130827
  Transmission Date: 20140515
  Serious: Yes (Death)
  Sender: FDA-Public Use
  Company Number: IE-ROCHE-1212575

PATIENT
  Sex: Female

DRUGS (15)
  1. CAPECITABINE [Suspect]
     Indication: BREAST CANCER
     Route: 065
     Dates: start: 201207, end: 201210
  2. TRASTUZUMAB [Suspect]
     Indication: BREAST CANCER
     Route: 065
     Dates: start: 200403, end: 200406
  3. TRASTUZUMAB [Suspect]
     Route: 065
     Dates: start: 201012
  4. TRASTUZUMAB [Suspect]
     Route: 065
     Dates: start: 201103, end: 201110
  5. TRASTUZUMAB [Suspect]
     Route: 065
     Dates: start: 201111, end: 201206
  6. TRASTUZUMAB EMTANSINE [Suspect]
     Indication: BREAST CANCER
     Route: 042
     Dates: start: 20130510, end: 20130510
  7. DOXORUBICIN [Suspect]
     Indication: BREAST CANCER
     Route: 065
     Dates: start: 201211
  8. PACLITAXEL [Suspect]
     Indication: BREAST CANCER
     Route: 065
     Dates: start: 201012
  9. PACLITAXEL [Suspect]
     Route: 065
     Dates: start: 201103, end: 201110
  10. LAPATINIB [Suspect]
     Indication: BREAST CANCER
     Route: 065
     Dates: start: 201207, end: 201210
  11. VINORELBINE [Suspect]
     Indication: BREAST CANCER
     Route: 065
     Dates: start: 201111, end: 201206
  12. CYCLOPHOSPHAMIDE [Suspect]
     Indication: BREAST CANCER
     Route: 065
     Dates: start: 201211
  13. TAMOXIFEN [Concomitant]
     Route: 065
     Dates: start: 200407
  14. ANASTROZOLE [Concomitant]
     Route: 065
     Dates: start: 200503, end: 200901
  15. EVEROLIMUS [Concomitant]
     Route: 065
     Dates: start: 201012

REACTIONS (2)
  - Breast cancer [Fatal]
  - Neuropathy peripheral [Unknown]
